FAERS Safety Report 7804791-9 (Version None)
Quarter: 2011Q4

REPORT INFORMATION
  Report Type: 
  Country: None (occurrence: None)
  Receive Date: 20111010
  Receipt Date: 20111005
  Transmission Date: 20120403
  Serious: Yes (Death)
  Sender: FDA-Public Use
  Company Number: US-CELGENEUS-163-21880-11100625

PATIENT
  Sex: Male

DRUGS (11)
  1. COUMADIN [Concomitant]
     Dosage: 1 MILLIGRAM
     Route: 048
  2. COREG [Concomitant]
     Dosage: 25 MILLIGRAM
     Route: 048
  3. OXYCODONE HCL [Concomitant]
     Dosage: 5 MILLIGRAM
     Route: 048
  4. TEMAZEPAM [Concomitant]
     Dosage: 30 MILLIGRAM
     Route: 048
  5. REVLIMID [Suspect]
     Indication: MULTIPLE MYELOMA
     Dosage: 15 MILLIGRAM
     Route: 048
     Dates: start: 20101215, end: 20110101
  6. LISINOPRIL [Concomitant]
     Dosage: 2.5 MILLIGRAM
     Route: 048
  7. GARLIC [Concomitant]
     Dosage: 1000 MILLIGRAM
     Route: 048
  8. LIPITOR [Concomitant]
     Dosage: 10 MILLIGRAM
     Route: 048
  9. POTASSIUM [Concomitant]
     Dosage: 75 MILLIGRAM
     Route: 048
  10. SORINE [Concomitant]
     Dosage: 120 MILLIGRAM
     Route: 048
  11. DEXAMETHASONE [Concomitant]
     Dosage: .25 MILLIGRAM
     Route: 048

REACTIONS (1)
  - DEATH [None]
